FAERS Safety Report 5241746-5 (Version None)
Quarter: 2007Q1

REPORT INFORMATION
  Report Type: 
  Country: None (occurrence: None)
  Receive Date: 20070220
  Receipt Date: 20070214
  Transmission Date: 20070707
  Serious: Yes (Death)
  Sender: FDA-Public Use
  Company Number: US-ELI_LILLY_AND_COMPANY-US200702002731

PATIENT
  Age: 80 Year
  Sex: Female

DRUGS (1)
  1. XIGRIS [Suspect]
     Route: 042
     Dates: start: 20070101

REACTIONS (1)
  - HAEMORRHAGE INTRACRANIAL [None]
